FAERS Safety Report 16262263 (Version 1)
Quarter: 2019Q2

REPORT INFORMATION
  Report Type: Spontaneous
  Country: US (occurrence: US)
  Receive Date: 20190501
  Receipt Date: 20190501
  Transmission Date: 20190711
  Serious: No
  Sender: FDA-Public Use
  Company Number: US-EPIC PHARMA LLC-2019EPC00055

PATIENT
  Sex: Male
  Weight: 92.52 kg

DRUGS (3)
  1. AMLODIPINE [Suspect]
     Active Substance: AMLODIPINE BESYLATE
     Indication: HYPERTENSION
     Dosage: 5 MG, 1X/DAY
     Route: 048
     Dates: start: 2015
  2. ELIQUIS [Concomitant]
     Active Substance: APIXABAN
  3. LOSARTAN AND HYDROCHLOROTHIAZIDE [Concomitant]
     Active Substance: HYDROCHLOROTHIAZIDE\LOSARTAN POTASSIUM

REACTIONS (3)
  - Gingival hypertrophy [Not Recovered/Not Resolved]
  - Dental plaque [Recovering/Resolving]
  - Gingival pain [Recovering/Resolving]
